FAERS Safety Report 24634312 (Version 4)
Quarter: 2025Q4

REPORT INFORMATION
  Report Type: Spontaneous
  Country: JP (occurrence: JP)
  Receive Date: 20241119
  Receipt Date: 20251013
  Transmission Date: 20260117
  Serious: Yes (Hospitalization, Other)
  Sender: ABBVIE
  Company Number: JP-ABBVIE-5992348

PATIENT
  Age: 12 Year
  Sex: Male
  Weight: 80 kg

DRUGS (5)
  1. RINVOQ [Suspect]
     Active Substance: UPADACITINIB
     Indication: Dermatitis atopic
     Dosage: FORM STRENGTH: 15 MILLIGRAM
     Route: 048
     Dates: start: 20240430, end: 20240531
  2. CYCLOSERINE [Suspect]
     Active Substance: CYCLOSERINE
     Indication: Product used for unknown indication
     Dosage: FORM STRENGTH: 0.05 PERCENT
     Route: 065
  3. DIFLUPREDNATE [Suspect]
     Active Substance: DIFLUPREDNATE
     Indication: Product used for unknown indication
     Dosage: FORM STRENGTH: 0.05 PERCENT
     Route: 065
  4. DELGOCITINIB [Suspect]
     Active Substance: DELGOCITINIB
     Indication: Product used for unknown indication
     Dosage: FORM STRENGTH: 0.5 PERCENT
     Route: 065
  5. FEXOFENADINE HYDROCHLORIDE [Concomitant]
     Active Substance: FEXOFENADINE HYDROCHLORIDE
     Indication: Dermatitis atopic
     Dosage: 60 MILLIGRAM
     Route: 048
     Dates: start: 20211126

REACTIONS (4)
  - Bullous impetigo [Recovering/Resolving]
  - Acne [Recovering/Resolving]
  - Rash pruritic [Recovering/Resolving]
  - Dermatitis acneiform [Recovering/Resolving]

NARRATIVE: CASE EVENT DATE: 20240101
